FAERS Safety Report 7434551-2 (Version None)
Quarter: 2011Q2

REPORT INFORMATION
  Report Type: 
  Country: None (occurrence: None)
  Receive Date: 20110425
  Receipt Date: 20110421
  Transmission Date: 20111010
  Serious: Yes (Death, Life-Threatening, Hospitalization, Other)
  Sender: FDA-Public Use
  Company Number: ES-MPIJNJ-2011-01671

PATIENT

DRUGS (17)
  1. MELPHALAN [Suspect]
     Indication: MULTIPLE MYELOMA
     Dosage: 22 MG, CYCLIC
     Route: 065
     Dates: start: 20100105, end: 20100101
  2. DIPYRIDAMOL [Concomitant]
     Indication: THROMBOCYTOPENIA
     Route: 042
  3. MELPHALAN [Suspect]
     Dosage: 20 MG, CYCLIC
     Route: 065
     Dates: start: 20101228, end: 20101231
  4. NEUROGRISEVIT                      /00091901/ [Concomitant]
  5. TRYPTIZOL                          /00002202/ [Concomitant]
     Dosage: 25 MG, UNK
  6. NOCTAMID [Concomitant]
     Dosage: 1 MG, UNK
  7. THALIDOMIDE [Suspect]
     Indication: MULTIPLE MYELOMA
     Dosage: 200 MG, CYCLIC
     Route: 048
     Dates: start: 20100105, end: 20101229
  8. PREDNISONE [Suspect]
     Dosage: 160 MG, CYCLIC
     Route: 065
     Dates: start: 20101228, end: 20101231
  9. COLCHICINE [Concomitant]
     Dosage: 1 MG, UNK
  10. GABAPENTIN [Concomitant]
     Dosage: 300 MG, UNK
  11. VELCADE [Suspect]
     Indication: PRODUCT USED FOR UNKNOWN INDICATION
     Dosage: UNK
     Route: 065
     Dates: end: 20110203
  12. ACYCLOVIR [Concomitant]
     Indication: ORAL HERPES
     Dosage: 800 MG, UNK
  13. DEXAMETHASONE [Concomitant]
     Route: 042
  14. OMEPRAZOLE [Concomitant]
     Dosage: 20 MG, UNK
  15. ALLOPURINOL [Concomitant]
     Dosage: 300 MG, UNK
  16. PREDNISONE [Suspect]
     Indication: MULTIPLE MYELOMA
     Dosage: 170 MG, CYCLIC
     Route: 065
     Dates: start: 20100105, end: 20100101
  17. ACTRAPID                           /00030501/ [Concomitant]
     Indication: HYPERGLYCAEMIA

REACTIONS (3)
  - RESPIRATORY TRACT INFECTION [None]
  - HYPERCALCAEMIA [None]
  - ANAEMIA [None]
